FAERS Safety Report 13293858 (Version 6)
Quarter: 2017Q3

REPORT INFORMATION
  Report Type: Spontaneous
  Country: KR (occurrence: KR)
  Receive Date: 20170303
  Receipt Date: 20170828
  Transmission Date: 20171127
  Serious: Yes (Hospitalization, Other)
  Sender: FDA-Public Use
  Company Number: KR-009507513-1702KOR012239

PATIENT
  Age: 51 Year
  Sex: Male
  Weight: 72.3 kg

DRUGS (27)
  1. DEXAMETHASONE SODIUM PHOSPHATE. [Concomitant]
     Active Substance: DEXAMETHASONE SODIUM PHOSPHATE
     Dosage: STRENGTH 5MG/ML, 10 MG, QD
     Route: 042
     Dates: start: 20161013, end: 20161015
  2. EMEND (FOSAPREPITANT DIMEGLUMINE) [Suspect]
     Active Substance: FOSAPREPITANT DIMEGLUMINE
     Indication: PROPHYLAXIS OF NAUSEA AND VOMITING
     Dosage: 150 MG, ONCE
     Route: 042
     Dates: start: 20160921, end: 20160921
  3. EMEND (FOSAPREPITANT DIMEGLUMINE) [Suspect]
     Active Substance: FOSAPREPITANT DIMEGLUMINE
     Dosage: 150 MG, ONCE
     Route: 042
     Dates: start: 20161103, end: 20161103
  4. LASTET [Concomitant]
     Active Substance: ETOPOSIDE
     Indication: CHEMOTHERAPY
     Dosage: STRENGTH 100MG/5ML, 180 MG, QD, CYCLE 1
     Route: 042
     Dates: start: 20160921, end: 20160923
  5. ASPIRIN. [Concomitant]
     Active Substance: ASPIRIN
     Indication: HYPERTENSION
     Dosage: 100 MG, QD
     Route: 048
  6. EMEND (FOSAPREPITANT DIMEGLUMINE) [Suspect]
     Active Substance: FOSAPREPITANT DIMEGLUMINE
     Dosage: 150 MG, ONCE
     Route: 042
     Dates: start: 20161013, end: 20161013
  7. EMEND (FOSAPREPITANT DIMEGLUMINE) [Suspect]
     Active Substance: FOSAPREPITANT DIMEGLUMINE
     Dosage: 150 MG, ONCE
     Route: 042
     Dates: start: 20161201, end: 20161201
  8. CISPLAN [Concomitant]
     Active Substance: CISPLATIN
     Dosage: STRENGTH 10MG/20ML, 125 MG, ONCE, CYCLE 4
     Route: 042
     Dates: start: 20161201, end: 20161201
  9. LASTET [Concomitant]
     Active Substance: ETOPOSIDE
     Dosage: STRENGTH 100MG/5ML, 180 MG, QD, CYCLE 2
     Route: 042
     Dates: start: 20161013, end: 20161015
  10. LASTET [Concomitant]
     Active Substance: ETOPOSIDE
     Dosage: STRENGTH 100MG/5ML, 180 MG, QD, CYCLE 3
     Route: 042
     Dates: start: 20161103, end: 20161105
  11. LASTET [Concomitant]
     Active Substance: ETOPOSIDE
     Dosage: STRENGTH 100MG/5ML, 180 MG, QD, CYCLE 4
     Route: 042
     Dates: start: 20161201, end: 20161203
  12. DEXAMETHASONE SODIUM PHOSPHATE. [Concomitant]
     Active Substance: DEXAMETHASONE SODIUM PHOSPHATE
     Dosage: STRENGTH 5MG/ML, 10 MG, QD
     Route: 042
     Dates: start: 20161103, end: 20161105
  13. LASIX [Concomitant]
     Active Substance: FUROSEMIDE
     Dosage: STRENGTH 20MG/2ML, 20 MG, ONCE
     Route: 042
     Dates: start: 20161201, end: 20161201
  14. CISPLAN [Concomitant]
     Active Substance: CISPLATIN
     Dosage: STRENGTH 10MG/20ML, 125 MG, ONCE, CYCLE 3
     Route: 042
     Dates: start: 20161103, end: 20161103
  15. ALOXI [Concomitant]
     Active Substance: PALONOSETRON HYDROCHLORIDE
     Dosage: 0.25 MG, ONCE
     Route: 042
     Dates: start: 20161013, end: 20161013
  16. ALOXI [Concomitant]
     Active Substance: PALONOSETRON HYDROCHLORIDE
     Dosage: 0.25 MG, ONCE
     Route: 042
     Dates: start: 20161103, end: 20161103
  17. ALOXI [Concomitant]
     Active Substance: PALONOSETRON HYDROCHLORIDE
     Dosage: 0.25 MG, ONCE
     Route: 042
     Dates: start: 20161201, end: 20161201
  18. LASIX [Concomitant]
     Active Substance: FUROSEMIDE
     Indication: PROPHYLAXIS
     Dosage: STRENGTH 20MG/2ML, 20 MG, ONCE
     Route: 042
     Dates: start: 20160921, end: 20160921
  19. CISPLAN [Concomitant]
     Active Substance: CISPLATIN
     Indication: CHEMOTHERAPY
     Dosage: STRENGTH 10MG/20ML, 125 MG, ONCE, CYCLE 1
     Route: 042
     Dates: start: 20160921, end: 20160921
  20. DEXAMETHASONE SODIUM PHOSPHATE. [Concomitant]
     Active Substance: DEXAMETHASONE SODIUM PHOSPHATE
     Dosage: STRENGTH 5MG/ML, 10 MG, QD
     Route: 042
     Dates: start: 20161201, end: 20161203
  21. ALOXI [Concomitant]
     Active Substance: PALONOSETRON HYDROCHLORIDE
     Indication: ANTIEMETIC SUPPORTIVE CARE
     Dosage: 0.25 MG, ONCE
     Route: 042
     Dates: start: 20160921, end: 20160921
  22. TENORMIN [Concomitant]
     Active Substance: ATENOLOL
     Indication: HYPERTENSION
     Dosage: 1 TABLET, 50 MG, QD
     Route: 048
  23. COZAAR PLUS [Concomitant]
     Active Substance: HYDROCHLOROTHIAZIDE\LOSARTAN POTASSIUM
     Indication: HYPERTENSION
     Dosage: 1 TABLET, QD
     Route: 048
  24. LASIX [Concomitant]
     Active Substance: FUROSEMIDE
     Dosage: STRENGTH 20MG/2ML, 20 MG, ONCE
     Route: 042
     Dates: start: 20161013, end: 20161013
  25. LASIX [Concomitant]
     Active Substance: FUROSEMIDE
     Dosage: STRENGTH 20MG/2ML, 20 MG, ONCE
     Route: 042
     Dates: start: 20161103, end: 20161103
  26. CISPLAN [Concomitant]
     Active Substance: CISPLATIN
     Dosage: STRENGTH 10MG/20ML, 125 MG, ONCE, CYCLE 2
     Route: 042
     Dates: start: 20161013, end: 20161013
  27. DEXAMETHASONE SODIUM PHOSPHATE. [Concomitant]
     Active Substance: DEXAMETHASONE SODIUM PHOSPHATE
     Indication: ANTIEMETIC SUPPORTIVE CARE
     Dosage: STRENGTH 5MG/ML, 10 MG, QD
     Route: 042
     Dates: start: 20160921, end: 20160923

REACTIONS (6)
  - Diarrhoea [Recovered/Resolved]
  - Candida infection [Recovered/Resolved]
  - Abdominal pain [Recovered/Resolved]
  - Delirium [Recovered/Resolved]
  - Pyrexia [Recovered/Resolved]
  - Headache [Recovered/Resolved]

NARRATIVE: CASE EVENT DATE: 20160930
